FAERS Safety Report 11877635 (Version 1)
Quarter: 2015Q4

REPORT INFORMATION
  Report Type: Spontaneous
  Country: IT (occurrence: IT)
  Receive Date: 20151230
  Receipt Date: 20151230
  Transmission Date: 20160305
  Serious: Yes (Other)
  Sender: FDA-Public Use
  Company Number: IT-MYLANLABS-2015M1047663

PATIENT

DRUGS (5)
  1. TOPIRAMATE. [Suspect]
     Active Substance: TOPIRAMATE
     Indication: SEVERE MYOCLONIC EPILEPSY OF INFANCY
  2. VALPROIC ACID. [Suspect]
     Active Substance: VALPROIC ACID
     Indication: SEVERE MYOCLONIC EPILEPSY OF INFANCY
  3. STIRIPENTOL [Suspect]
     Active Substance: STIRIPENTOL
     Indication: SEVERE MYOCLONIC EPILEPSY OF INFANCY
  4. LEVETIRACETAM. [Suspect]
     Active Substance: LEVETIRACETAM
     Indication: SEVERE MYOCLONIC EPILEPSY OF INFANCY
  5. GARDENAL                           /00023201/ [Suspect]
     Active Substance: PHENOBARBITAL
     Indication: SEVERE MYOCLONIC EPILEPSY OF INFANCY

REACTIONS (2)
  - Drug resistance [Unknown]
  - Drug ineffective [Unknown]
